FAERS Safety Report 21921058 (Version 1)
Quarter: 2023Q1

REPORT INFORMATION
  Report Type: Spontaneous
  Country: CZ (occurrence: CZ)
  Receive Date: 20230127
  Receipt Date: 20230127
  Transmission Date: 20230417
  Serious: Yes (Other)
  Sender: FDA-Public Use
  Company Number: CZ-002147023-NVSC2022CZ244665

PATIENT
  Age: 48 Year
  Sex: Female

DRUGS (15)
  1. LETROZOLE [Suspect]
     Active Substance: LETROZOLE
     Indication: Breast cancer
     Dosage: 600 MG PER DAY FOR 3 WEEKS WITH A 1-WEEK BREAK
     Route: 065
     Dates: start: 20191125
  2. LETROZOLE [Suspect]
     Active Substance: LETROZOLE
     Indication: Hormone receptor positive HER2 negative breast cancer
  3. LETROZOLE [Suspect]
     Active Substance: LETROZOLE
     Indication: Invasive lobular breast carcinoma
  4. RIBOCICLIB [Suspect]
     Active Substance: RIBOCICLIB
     Indication: Breast cancer
     Dosage: 600 MG, QD, FOR 3 WEEKS WITH A ONE-WEEK BREAK
     Route: 065
     Dates: start: 20191125
  5. RIBOCICLIB [Suspect]
     Active Substance: RIBOCICLIB
     Indication: Invasive lobular breast carcinoma
  6. RIBOCICLIB [Suspect]
     Active Substance: RIBOCICLIB
     Indication: Hormone receptor positive HER2 negative breast cancer
  7. DENOSUMAB [Suspect]
     Active Substance: DENOSUMAB
     Indication: Prophylaxis
     Dosage: UNK
     Route: 065
     Dates: start: 20191125
  8. DENOSUMAB [Suspect]
     Active Substance: DENOSUMAB
     Indication: Breast neoplasm
  9. DENOSUMAB [Suspect]
     Active Substance: DENOSUMAB
     Indication: Breast cancer
  10. DENOSUMAB [Suspect]
     Active Substance: DENOSUMAB
     Indication: Musculoskeletal cancer
  11. ZOLADEX [Suspect]
     Active Substance: GOSERELIN ACETATE
     Indication: Breast cancer
     Dosage: UNK
     Route: 058
     Dates: start: 20191125
  12. ZOLADEX [Suspect]
     Active Substance: GOSERELIN ACETATE
     Indication: Breast neoplasm
  13. ZOLADEX [Suspect]
     Active Substance: GOSERELIN ACETATE
     Indication: Invasive lobular breast carcinoma
  14. ZOLADEX [Suspect]
     Active Substance: GOSERELIN ACETATE
     Indication: Hormone receptor positive HER2 negative breast cancer
  15. RIBOCICLIB [Concomitant]
     Active Substance: RIBOCICLIB
     Indication: Breast neoplasm
     Dosage: UNK
     Route: 065

REACTIONS (4)
  - Neutropenia [Not Recovered/Not Resolved]
  - Dyspepsia [Unknown]
  - Gastrointestinal disorder [Unknown]
  - COVID-19 [Recovered/Resolved]

NARRATIVE: CASE EVENT DATE: 20210901
